FAERS Safety Report 17679853 (Version 2)
Quarter: 2020Q2

REPORT INFORMATION
  Report Type: Spontaneous
  Country: US (occurrence: US)
  Receive Date: 20200417
  Receipt Date: 20200612
  Transmission Date: 20200714
  Serious: No
  Sender: FDA-Public Use
  Company Number: US-VERTEX PHARMACEUTICALS-2020-008722

PATIENT
  Age: 8 Year
  Sex: Female
  Weight: 26 kg

DRUGS (1)
  1. SYMDEKO [Suspect]
     Active Substance: IVACAFTOR\TEZACAFTOR
     Indication: CYSTIC FIBROSIS
     Dosage: 1 TABLET(50MG TEZACAFTOR/75MG IVACAFTOR)AM  AND 1 TABLET(75MG IVACAFTOR)PM
     Route: 048
     Dates: start: 20200320

REACTIONS (1)
  - Urine odour abnormal [Recovered/Resolved]

NARRATIVE: CASE EVENT DATE: 20200320
